FAERS Safety Report 21565089 (Version 1)
Quarter: 2022Q4

REPORT INFORMATION
  Report Type: Spontaneous
  Country: US (occurrence: US)
  Receive Date: 20221108
  Receipt Date: 20221108
  Transmission Date: 20230112
  Serious: Yes (Hospitalization, Other)
  Sender: FDA-Public Use
  Company Number: US-drreddys-LIT/USA/22/0156908

PATIENT
  Age: 55 Year
  Sex: Female

DRUGS (12)
  1. METOPROLOL SUCCINATE [Suspect]
     Active Substance: METOPROLOL SUCCINATE
     Indication: Hormone receptor negative HER2 positive breast cancer
  2. METOPROLOL SUCCINATE [Suspect]
     Active Substance: METOPROLOL SUCCINATE
     Dosage: PERINDOPRIL DOSE WAS INCREASED TO 8 MG DAILY WITH CONCOMITANT TITRATION OF METOPROLOL AND SPIRONOLAC
  3. EPIRUBICIN [Suspect]
     Active Substance: EPIRUBICIN
     Indication: Hormone receptor negative HER2 positive breast cancer
     Dosage: FOR 4 CYCLES FOR 2 MONTHS
  4. CYCLOPHOSPHAMIDE [Suspect]
     Active Substance: CYCLOPHOSPHAMIDE
     Indication: Hormone receptor negative HER2 positive breast cancer
     Dosage: FOR 4 CYCLES FOR 2 MONTHS
  5. PERINDOPRIL [Suspect]
     Active Substance: PERINDOPRIL
     Indication: Prophylaxis
  6. PERINDOPRIL [Suspect]
     Active Substance: PERINDOPRIL
  7. SPIRONOLACTONE [Suspect]
     Active Substance: SPIRONOLACTONE
     Indication: Hormone receptor negative HER2 positive breast cancer
  8. SPIRONOLACTONE [Suspect]
     Active Substance: SPIRONOLACTONE
  9. SPIRONOLACTONE [Suspect]
     Active Substance: SPIRONOLACTONE
     Dosage: PERINDOPRIL DOSE WAS INCREASED TO 8 MG DAILY WITH CONCOMITANT TITRATION OF METOPROLOL AND SPIRONOLAC
  10. PACLITAXEL [Concomitant]
     Active Substance: PACLITAXEL
     Indication: Hormone receptor negative HER2 positive breast cancer
     Dosage: FOUR-CYCLE
  11. TRASTUZUMAB [Concomitant]
     Active Substance: TRASTUZUMAB
     Indication: Hormone receptor negative HER2 positive breast cancer
     Dosage: FOUR-CYCLE
  12. TRASTUZUMAB [Concomitant]
     Active Substance: TRASTUZUMAB
     Dosage: 360 MG FOR FOUR-CYCLE

REACTIONS (7)
  - Renal failure [Recovering/Resolving]
  - Hyperkalaemia [Recovering/Resolving]
  - Hypotension [Recovering/Resolving]
  - Cardiac dysfunction [Unknown]
  - Dyspnoea [Recovering/Resolving]
  - Fatigue [Recovering/Resolving]
  - Off label use [Unknown]
